FAERS Safety Report 5332883-5 (Version None)
Quarter: 2007Q2

REPORT INFORMATION
  Report Type: 
  Country: None (occurrence: None)
  Receive Date: 20070521
  Receipt Date: 20070510
  Transmission Date: 20071010
  Serious: Yes (Hospitalization)
  Sender: FDA-Public Use
  Company Number: 2007AL001904

PATIENT
  Age: 91 Year
  Sex: Female

DRUGS (6)
  1. ACYCLOVIR [Suspect]
     Indication: HERPES ZOSTER
     Dosage: 1000 MG; X1; PO
     Route: 048
     Dates: start: 20070330, end: 20070331
  2. ACYCLOVIR [Suspect]
     Indication: HERPES ZOSTER
  3. AMITRIPTYLINE HCL [Concomitant]
  4. DIAZEPAM [Concomitant]
  5. DOXAZOSIN MESYLATE [Concomitant]
  6. FUROSEMIDE [Concomitant]

REACTIONS (4)
  - DYSPHONIA [None]
  - DYSPNOEA [None]
  - SWELLING FACE [None]
  - SWOLLEN TONGUE [None]
